FAERS Safety Report 12376593 (Version 2)
Quarter: 2016Q2

REPORT INFORMATION
  Report Type: Spontaneous
  Country: US (occurrence: US)
  Receive Date: 20160517
  Receipt Date: 20160517
  Transmission Date: 20160815
  Serious: No
  Sender: FDA-Public Use
  Company Number: US-MALLINCKRODT-T201502537

PATIENT
  Age: 28 Year
  Sex: Female
  Weight: 75 kg

DRUGS (2)
  1. AMBIEN [Concomitant]
     Active Substance: ZOLPIDEM TARTRATE
  2. H.P. ACTHAR [Suspect]
     Active Substance: CORTICOTROPIN
     Dosage: UNK
     Route: 065

REACTIONS (21)
  - Eye pain [Unknown]
  - Contusion [Unknown]
  - Balance disorder [Unknown]
  - Visual impairment [Unknown]
  - Hair disorder [Unknown]
  - Migraine [Unknown]
  - Temperature intolerance [Unknown]
  - Memory impairment [Unknown]
  - Muscular weakness [Unknown]
  - Pollakiuria [Unknown]
  - Dysphagia [Unknown]
  - Chills [Unknown]
  - Chest pain [Unknown]
  - Drug ineffective [Unknown]
  - Dizziness [Unknown]
  - Tremor [Unknown]
  - Insomnia [Unknown]
  - Fatigue [Unknown]
  - Muscle spasms [Unknown]
  - Anxiety [Unknown]
  - Joint stiffness [Unknown]

NARRATIVE: CASE EVENT DATE: 20130221
